FAERS Safety Report 7376214-8 (Version None)
Quarter: 2011Q1

REPORT INFORMATION
  Report Type: 
  Country: None (occurrence: None)
  Receive Date: 20110325
  Receipt Date: 20110322
  Transmission Date: 20110831
  Serious: Yes (Hospitalization, Other)
  Sender: FDA-Public Use
  Company Number: US-ABBOTT-10P-163-0693285-00

PATIENT
  Sex: Male
  Weight: 74.456 kg

DRUGS (8)
  1. METRONIDAZOLE [Concomitant]
     Indication: PRODUCT USED FOR UNKNOWN INDICATION
  2. AMITRIPTYLINE [Concomitant]
     Indication: INSOMNIA
  3. PERCOCET [Concomitant]
     Indication: PAIN
  4. HUMIRA [Suspect]
     Dates: end: 20101001
  5. CIPRO [Concomitant]
     Indication: PRODUCT USED FOR UNKNOWN INDICATION
  6. PREDNISONE [Concomitant]
     Indication: PRODUCT USED FOR UNKNOWN INDICATION
  7. HUMIRA [Suspect]
     Dates: start: 20100401
  8. HUMIRA [Suspect]
     Indication: CROHN'S DISEASE
     Dates: start: 20070101, end: 20070101

REACTIONS (3)
  - CROHN'S DISEASE [None]
  - FISTULA [None]
  - TREATMENT NONCOMPLIANCE [None]
